FAERS Safety Report 5355832-2 (Version None)
Quarter: 2007Q2

REPORT INFORMATION
  Report Type: 
  Country: None (occurrence: None)
  Receive Date: 20070530
  Receipt Date: 20061005
  Transmission Date: 20071010
  Serious: Yes (Other)
  Sender: FDA-Public Use
  Company Number: US200610001261

PATIENT
  Age: 34 Year
  Sex: Male
  Weight: 97.5 kg

DRUGS (2)
  1. ZYPREXA [Suspect]
     Indication: SCHIZOPHRENIA
     Dosage: 20 MG, DAILY (1/D), ORAL
     Route: 048
     Dates: start: 20020101
  2. SEROQUEL [Concomitant]

REACTIONS (1)
  - WEIGHT INCREASED [None]
